FAERS Safety Report 8838230 (Version 1)
Quarter: 2012Q4

REPORT INFORMATION
  Report Type: 
  Country: US (occurrence: US)
  Receive Date: 20121012
  Receipt Date: 20121012
  Transmission Date: 20130627
  Serious: Yes (Other)
  Sender: FDA-Public Use
  Company Number: US-ROCHE-1125521

PATIENT
  Sex: Female
  Weight: 36.5 kg

DRUGS (2)
  1. NUTROPIN [Suspect]
     Indication: BODY HEIGHT BELOW NORMAL
     Route: 065
     Dates: start: 19970210
  2. NUTROPIN [Suspect]
     Indication: RENAL FAILURE CHRONIC

REACTIONS (1)
  - Myocardial infarction [Unknown]
